FAERS Safety Report 25450900 (Version 1)
Quarter: 2025Q2

REPORT INFORMATION
  Report Type: Spontaneous
  Country: CH (occurrence: CH)
  Receive Date: 20250618
  Receipt Date: 20250618
  Transmission Date: 20250717
  Serious: Yes (Death, Hospitalization, Other)
  Sender: SANOFI AVENTIS
  Company Number: None

PATIENT
  Age: 76 Year
  Sex: Male
  Weight: 70 kg

DRUGS (31)
  1. ENOXAPARIN SODIUM [Suspect]
     Active Substance: ENOXAPARIN SODIUM
     Indication: Thrombosis prophylaxis
     Route: 058
     Dates: start: 20241021, end: 20241102
  2. MAGNESIUM ASPARTATE HYDROCHLORIDE [Suspect]
     Active Substance: MAGNESIUM ASPARTATE HYDROCHLORIDE
     Dosage: 10 MMOL, QD
     Route: 048
  3. MESTINON [Suspect]
     Active Substance: PYRIDOSTIGMINE BROMIDE
     Dosage: 60 MG, Q6H
     Route: 048
     Dates: end: 20241107
  4. ASCORBIC ACID\MINERALS\VITAMINS [Suspect]
     Active Substance: ASCORBIC ACID\MINERALS\VITAMINS
     Dosage: 1 DF, QD
     Route: 048
  5. SODIUM BICARBONATE [Suspect]
     Active Substance: SODIUM BICARBONATE
     Dosage: 1000 MG, Q12H
     Route: 048
  6. NEBIVOLOL HYDROCHLORIDE [Suspect]
     Active Substance: NEBIVOLOL HYDROCHLORIDE
     Dosage: 2.5 MG, QD
     Route: 048
  7. PREDNISONE [Concomitant]
     Active Substance: PREDNISONE
     Indication: Myasthenia gravis
     Dosage: 40 MG, QD
     Route: 048
     Dates: start: 202410
  8. ELIQUIS [Concomitant]
     Active Substance: APIXABAN
     Indication: Ventricular fibrillation
     Dosage: 5 MG, Q12H
     Route: 048
     Dates: start: 20241029, end: 202411
  9. PREDNISOLONE [Concomitant]
     Active Substance: PREDNISOLONE
     Indication: Myasthenia gravis
     Dosage: 20.000MG QD
     Route: 048
     Dates: start: 202409, end: 20240925
  10. PREDNISOLONE [Concomitant]
     Active Substance: PREDNISOLONE
     Dosage: 50.000MG QD
     Route: 048
     Dates: start: 20241005, end: 202410
  11. AZATHIOPRINE [Concomitant]
     Active Substance: AZATHIOPRINE
     Indication: Myasthenia gravis
     Dosage: 75 MG, Q12H (DOSAGE NOT SPECIFIED)
     Route: 048
     Dates: start: 202307, end: 20241004
  12. VALGANCICLOVIR HYDROCHLORIDE [Concomitant]
     Active Substance: VALGANCICLOVIR HYDROCHLORIDE
     Indication: Cytomegalovirus colitis
     Dosage: 900 MG, QD (DOSAGE NOT SPECIFIED)
     Route: 048
     Dates: start: 20241007
  13. Phoscap [Concomitant]
     Dosage: 6 MMOL, Q8H
     Route: 048
  14. OLODATEROL HYDROCHLORIDE\TIOTROPIUM BROMIDE MONOHYDRATE [Concomitant]
     Active Substance: OLODATEROL HYDROCHLORIDE\TIOTROPIUM BROMIDE MONOHYDRATE
     Dosage: 2 DF, QD
     Route: 055
  15. Procto glyvenol [Concomitant]
     Dosage: 1 DF, Q6H
     Route: 061
  16. VITAMINS [Concomitant]
     Active Substance: VITAMINS
     Indication: Infection prophylaxis
     Dosage: 1 DF, QD (3 TIMES PER WEEK)
     Route: 048
  17. SULFAMETHOXAZOLE\TRIMETHOPRIM [Concomitant]
     Active Substance: SULFAMETHOXAZOLE\TRIMETHOPRIM
     Indication: Infection prophylaxis
     Dosage: 1 DF, TIW
     Route: 048
  18. Pregabalin axapharm [Concomitant]
     Dosage: 150 MG, Q12H
     Route: 048
  19. Oxyplastin [Concomitant]
     Dosage: 0.1 G, Q6H
     Route: 061
  20. NEOSTIGMINE [Concomitant]
     Active Substance: NEOSTIGMINE
     Route: 048
     Dates: start: 20241107
  21. GANCICLOVIR [Concomitant]
     Active Substance: GANCICLOVIR
     Route: 042
     Dates: start: 20241002, end: 20241106
  22. PIPERACILLIN SODIUM\TAZOBACTAM SODIUM [Concomitant]
     Active Substance: PIPERACILLIN SODIUM\TAZOBACTAM SODIUM
     Indication: Gastroenteritis Escherichia coli
     Route: 042
     Dates: start: 20241030, end: 20241104
  23. PIPERACILLIN SODIUM\TAZOBACTAM SODIUM [Concomitant]
     Active Substance: PIPERACILLIN SODIUM\TAZOBACTAM SODIUM
     Indication: Pneumonia
     Route: 042
     Dates: start: 20241108, end: 20241112
  24. PIPERACILLIN SODIUM\TAZOBACTAM SODIUM [Concomitant]
     Active Substance: PIPERACILLIN SODIUM\TAZOBACTAM SODIUM
     Indication: Sepsis
  25. POLYETHYLENE GLYCOL 4000 [Concomitant]
     Active Substance: POLYETHYLENE GLYCOL 4000
     Route: 048
     Dates: end: 202409
  26. Lyman 50000 emgel [Concomitant]
     Dosage: 0.5 MG, Q12H
     Route: 061
  27. Muco mepha [Concomitant]
     Dosage: 600 MG, QD
     Route: 048
  28. ESOMEPRAZOLE MAGNESIUM [Concomitant]
     Active Substance: ESOMEPRAZOLE MAGNESIUM
     Dosage: 40 MG, QD
     Route: 048
  29. Calcimagon D3 Forte [Concomitant]
     Dosage: 1 DF, QD
     Route: 048
  30. POTASSIUM CHLORIDE [Concomitant]
     Active Substance: POTASSIUM CHLORIDE
     Dosage: 10 MMOL, Q12H
     Route: 048
  31. CHOLECALCIFEROL [Concomitant]
     Active Substance: CHOLECALCIFEROL
     Indication: Infection prophylaxis
     Dosage: 0.4 ML, QD (3 TIMES PER WEEK)
     Route: 048

REACTIONS (5)
  - Thrombocytopenia [Fatal]
  - Septic shock [Fatal]
  - Leukopenia [Fatal]
  - Intestinal haemorrhage [Fatal]
  - Cytomegalovirus colitis [Recovering/Resolving]

NARRATIVE: CASE EVENT DATE: 20240901
